FAERS Safety Report 13838278 (Version 2)
Quarter: 2017Q3

REPORT INFORMATION
  Report Type: Report from Study
  Country: US (occurrence: US)
  Receive Date: 20170807
  Receipt Date: 20170821
  Transmission Date: 20171127
  Serious: Yes (Death)
  Sender: FDA-Public Use
  Company Number: US-ROCHE-1970919

PATIENT
  Age: 61 Year
  Sex: Female
  Weight: 65 kg

DRUGS (1)
  1. BEVACIZUMAB. [Suspect]
     Active Substance: BEVACIZUMAB
     Indication: INVASIVE BREAST CARCINOMA
     Dosage: IV OVER 30-90 MINUTES ON DAY 1?LAST DOSE- 09/DEC/2009
     Route: 042
     Dates: start: 20090720

REACTIONS (2)
  - Hepatic cirrhosis [Fatal]
  - Ascites [Fatal]

NARRATIVE: CASE EVENT DATE: 20170316
